FAERS Safety Report 7996999-7 (Version None)
Quarter: 2011Q4

REPORT INFORMATION
  Report Type: 
  Country: None (occurrence: None)
  Receive Date: 20111221
  Receipt Date: 20111217
  Transmission Date: 20120403
  Serious: Yes (Death, Hospitalization)
  Sender: FDA-Public Use
  Company Number: PHHY2011HU96923

PATIENT
  Age: 77 Year
  Sex: Male

DRUGS (5)
  1. ALBUTEROL SULFATE AUTOHALER [Concomitant]
     Dosage: AS NEEDED
  2. ANTIBIOTICS [Concomitant]
  3. INDACATEROL [Suspect]
     Indication: BRONCHITIS
  4. THEOPHYLLINE [Concomitant]
     Dates: start: 20110211
  5. INDACATEROL [Suspect]
     Indication: CHRONIC OBSTRUCTIVE PULMONARY DISEASE
     Dosage: 150 UG, QD
     Dates: start: 20110224, end: 20110310

REACTIONS (10)
  - RESPIRATORY FAILURE [None]
  - ACUTE MYELOID LEUKAEMIA [None]
  - FORCED EXPIRATORY VOLUME INCREASED [None]
  - INFECTION [None]
  - EMPHYSEMA [None]
  - DILATATION VENTRICULAR [None]
  - DIARRHOEA [None]
  - VOMITING [None]
  - PNEUMONIA [None]
  - DYSPNOEA [None]
